FAERS Safety Report 6335622-4 (Version None)
Quarter: 2009Q3

REPORT INFORMATION
  Report Type: 
  Country: None (occurrence: None)
  Receive Date: 20090831
  Receipt Date: 20090821
  Transmission Date: 20100115
  Serious: Yes (Other)
  Sender: FDA-Public Use
  Company Number: US-ABBOTT-09P-163-0592942-00

PATIENT
  Sex: Female

DRUGS (9)
  1. MERIDIA [Suspect]
     Indication: WEIGHT DECREASED
     Dates: start: 20090819, end: 20090822
  2. MERIDIA [Suspect]
     Dates: start: 20040101
  3. UNKNOWN MIGRAINE MEDICATION [Suspect]
     Indication: MIGRAINE
     Dates: start: 20090701, end: 20090822
  4. DIVALPROEX SODIUM [Concomitant]
     Indication: CONVULSION
     Dosage: PATIENT ONLY TAKES GENERIC
     Dates: start: 20010101
  5. TOPAMAX [Concomitant]
     Indication: CONVULSION
  6. LAMICTAL [Concomitant]
     Indication: CONVULSION
  7. ZOCOR [Concomitant]
     Indication: BLOOD CHOLESTEROL INCREASED
  8. TRAZODONE [Concomitant]
     Indication: DRUG USE FOR UNKNOWN INDICATION
     Dates: end: 20090101
  9. TRAZODONE [Concomitant]
     Dates: start: 20090101

REACTIONS (11)
  - CONVULSION [None]
  - DYSSTASIA [None]
  - EYE ROLLING [None]
  - HEADACHE [None]
  - HEMIPARESIS [None]
  - MYALGIA [None]
  - PARAESTHESIA [None]
  - STARING [None]
  - TONGUE BITING [None]
  - TREMOR [None]
  - URINARY INCONTINENCE [None]
